FAERS Safety Report 4333794-4 (Version None)
Quarter: 2004Q2

REPORT INFORMATION
  Report Type: 
  Country: None (occurrence: None)
  Receive Date: 20040406
  Receipt Date: 20040406
  Transmission Date: 20050107
  Serious: Yes (Other)
  Sender: FDA-Public Use
  Company Number: None

PATIENT
  Age: 55 Year
  Sex: Female
  Weight: 79.3795 kg

DRUGS (2)
  1. CREST CAVITY PROTECTION PROCTER+GAMBLE [Suspect]
     Dosage: DAILY ORAL
     Route: 048
  2. TUMS ANTACID GLAXOSMITHKLINE [Suspect]
     Dosage: 2TABS WHEN NEEDE ORAL
     Route: 048

REACTIONS (1)
  - MEDICATION ERROR [None]
